FAERS Safety Report 18427877 (Version 1)
Quarter: 2020Q4

REPORT INFORMATION
  Report Type: Spontaneous
  Country: US (occurrence: US)
  Receive Date: 20201026
  Receipt Date: 20201026
  Transmission Date: 20210114
  Serious: No
  Sender: FDA-Public Use
  Company Number: US-ELI_LILLY_AND_COMPANY-US202007011507

PATIENT

DRUGS (1)
  1. EMGALITY [Suspect]
     Active Substance: GALCANEZUMAB-GNLM
     Indication: PRODUCT USED FOR UNKNOWN INDICATION
     Dosage: 1 DOSAGE FORM, UNKNOWN
     Route: 065

REACTIONS (12)
  - Anxiety [Unknown]
  - Vertigo [Unknown]
  - Pain [Unknown]
  - Vomiting [Unknown]
  - Paraesthesia [Unknown]
  - Headache [Unknown]
  - Weight increased [Unknown]
  - Depression [Unknown]
  - Confusional state [Unknown]
  - Alopecia [Unknown]
  - Nausea [Unknown]
  - Hypoaesthesia [Unknown]
